FAERS Safety Report 17901393 (Version 2)
Quarter: 2020Q2

REPORT INFORMATION
  Report Type: Spontaneous
  Country: CA (occurrence: CA)
  Receive Date: 20200616
  Receipt Date: 20200624
  Transmission Date: 20200714
  Serious: Yes (Other)
  Sender: FDA-Public Use
  Company Number: CA-JNJFOC-20200614420

PATIENT
  Sex: Female

DRUGS (13)
  1. ASACOL [Suspect]
     Active Substance: MESALAMINE
     Indication: PRODUCT USED FOR UNKNOWN INDICATION
     Route: 065
  2. XELJANZ [Concomitant]
     Active Substance: TOFACITINIB CITRATE
  3. HUMIRA [Suspect]
     Active Substance: ADALIMUMAB
     Indication: COLITIS ULCERATIVE
     Route: 058
  4. ENTYVIO [Suspect]
     Active Substance: VEDOLIZUMAB
     Indication: PRODUCT USED FOR UNKNOWN INDICATION
     Route: 042
  5. CALCIUM GLUCONATE. [Concomitant]
     Active Substance: CALCIUM GLUCONATE
  6. PARA-AMINOSALICYLIC ACID [Concomitant]
     Active Substance: AMINOSALICYLIC ACID
  7. 5-ASA [Suspect]
     Active Substance: MESALAMINE
     Indication: PRODUCT USED FOR UNKNOWN INDICATION
     Route: 065
  8. PREDNISONE. [Suspect]
     Active Substance: PREDNISONE
     Indication: PRODUCT USED FOR UNKNOWN INDICATION
     Route: 048
  9. CYANOCOBALAMIN. [Concomitant]
     Active Substance: CYANOCOBALAMIN
  10. ERGOCALCIFEROL. [Concomitant]
     Active Substance: ERGOCALCIFEROL
  11. REMICADE [Suspect]
     Active Substance: INFLIXIMAB
     Indication: PRODUCT USED FOR UNKNOWN INDICATION
     Route: 042
  12. METHOTREXATE. [Suspect]
     Active Substance: METHOTREXATE
     Indication: PRODUCT USED FOR UNKNOWN INDICATION
     Route: 065
  13. PREDNISONE. [Suspect]
     Active Substance: PREDNISONE
     Route: 048

REACTIONS (22)
  - Abdominal pain [Not Recovered/Not Resolved]
  - Headache [Not Recovered/Not Resolved]
  - Malaise [Not Recovered/Not Resolved]
  - Mucous stools [Not Recovered/Not Resolved]
  - Rectal haemorrhage [Not Recovered/Not Resolved]
  - Renal impairment [Not Recovered/Not Resolved]
  - Colitis ulcerative [Not Recovered/Not Resolved]
  - Nausea [Not Recovered/Not Resolved]
  - Diarrhoea haemorrhagic [Not Recovered/Not Resolved]
  - Abdominal tenderness [Not Recovered/Not Resolved]
  - Anaemia [Unknown]
  - Constipation [Not Recovered/Not Resolved]
  - Peripheral swelling [Not Recovered/Not Resolved]
  - Frequent bowel movements [Not Recovered/Not Resolved]
  - Hepatic steatosis [Not Recovered/Not Resolved]
  - Anal incontinence [Not Recovered/Not Resolved]
  - Hypertension [Not Recovered/Not Resolved]
  - Drug ineffective [Unknown]
  - Vitamin D deficiency [Not Recovered/Not Resolved]
  - Abdominal discomfort [Not Recovered/Not Resolved]
  - Abdominal distension [Not Recovered/Not Resolved]
  - Flatulence [Not Recovered/Not Resolved]
